FAERS Safety Report 13901564 (Version 1)
Quarter: 2017Q3

REPORT INFORMATION
  Report Type: Spontaneous
  Country: US (occurrence: US)
  Receive Date: 20170824
  Receipt Date: 20170824
  Transmission Date: 20171127
  Serious: Yes (Other)
  Sender: FDA-Public Use
  Company Number: US-AMGEN-USASP2017126566

PATIENT
  Age: 78 Year
  Sex: Female

DRUGS (4)
  1. FLU [Concomitant]
     Active Substance: INFLUENZA VIRUS VACCINE
  2. ENBREL [Suspect]
     Active Substance: ETANERCEPT
     Dosage: 50 MG, QWK
     Route: 065
     Dates: start: 201701
  3. ENBREL [Suspect]
     Active Substance: ETANERCEPT
     Indication: RHEUMATOID ARTHRITIS
     Dosage: 50 MG, QWK
     Route: 065
     Dates: start: 2009, end: 201512
  4. TYPHOID [Concomitant]
     Active Substance: TYPHOID VACCINE

REACTIONS (2)
  - Surgery [Unknown]
  - Rash [Unknown]
